FAERS Safety Report 6096779-6 (Version None)
Quarter: 2009Q1

REPORT INFORMATION
  Report Type: 
  Country: None (occurrence: None)
  Receive Date: 20090227
  Receipt Date: 20090220
  Transmission Date: 20090719
  Serious: Yes (Hospitalization)
  Sender: FDA-Public Use
  Company Number: US-BIOGENIDEC-2009BI005978

PATIENT
  Age: 65 Year
  Sex: Female

DRUGS (2)
  1. AVONEX [Suspect]
     Indication: MULTIPLE SCLEROSIS
     Route: 030
     Dates: start: 20030124, end: 20040616
  2. AVONEX [Suspect]
     Route: 030
     Dates: start: 20080718, end: 20081126

REACTIONS (2)
  - HIP FRACTURE [None]
  - INFLUENZA LIKE ILLNESS [None]
